FAERS Safety Report 9824682 (Version 3)
Quarter: 2014Q3

REPORT INFORMATION
  Report Type: Report from Study
  Country: BE (occurrence: BE)
  Receive Date: 20140117
  Receipt Date: 20140714
  Transmission Date: 20150326
  Serious: Yes (Death, Hospitalization)
  Sender: FDA-Public Use
  Company Number: BE-ROCHE-1334155

PATIENT
  Age: 85 Year
  Sex: Male

DRUGS (14)
  1. ASAFLOW [Concomitant]
     Active Substance: ASPIRIN
     Route: 065
     Dates: start: 2005
  2. HALOPERIDOL. [Concomitant]
     Active Substance: HALOPERIDOL
     Route: 065
     Dates: start: 2011
  3. TRITACE [Concomitant]
     Active Substance: RAMIPRIL
     Route: 065
     Dates: start: 2011
  4. EMCONCOR [Concomitant]
     Active Substance: BISOPROLOL FUMARATE
     Route: 065
     Dates: start: 2011
  5. ZOCOR [Concomitant]
     Active Substance: SIMVASTATIN
     Route: 065
     Dates: start: 2000
  6. TAMSULOSINE [Concomitant]
     Active Substance: TAMSULOSIN HYDROCHLORIDE
     Route: 065
     Dates: start: 2004
  7. TAMSULOSINE [Concomitant]
     Active Substance: TAMSULOSIN HYDROCHLORIDE
     Route: 065
     Dates: start: 2011
  8. URGENIN (BELGIUM) [Concomitant]
     Route: 065
     Dates: start: 2009
  9. XALATAN [Concomitant]
     Active Substance: LATANOPROST
     Route: 065
     Dates: start: 2006
  10. BUMETANIDE. [Concomitant]
     Active Substance: BUMETANIDE
     Route: 065
     Dates: start: 2012
  11. COSOPT [Concomitant]
     Active Substance: DORZOLAMIDE HYDROCHLORIDE\TIMOLOL MALEATE
  12. SERENASE (BELGIUM) [Concomitant]
     Route: 065
     Dates: start: 2011
  13. RANIBIZUMAB [Suspect]
     Active Substance: RANIBIZUMAB
     Indication: PRODUCT USED FOR UNKNOWN INDICATION
     Route: 050
     Dates: start: 20120621, end: 20120621
  14. CORDARONE [Concomitant]
     Active Substance: AMIODARONE HYDROCHLORIDE
     Route: 065
     Dates: start: 2011

REACTIONS (5)
  - Small intestinal obstruction [Recovering/Resolving]
  - Aortic aneurysm [Recovered/Resolved]
  - Ischaemic cardiomyopathy [Recovering/Resolving]
  - Prerenal failure [Recovering/Resolving]
  - Death [Fatal]

NARRATIVE: CASE EVENT DATE: 20130328
